FAERS Safety Report 7245816-1 (Version None)
Quarter: 2011Q1

REPORT INFORMATION
  Report Type: 
  Country: None (occurrence: None)
  Receive Date: 20110126
  Receipt Date: 20110120
  Transmission Date: 20110831
  Serious: Yes (Death, Hospitalization)
  Sender: FDA-Public Use
  Company Number: US-CEPHALON-2011000229

PATIENT
  Sex: Male

DRUGS (2)
  1. TRISENOX [Suspect]
     Indication: MULTIPLE MYELOMA
     Route: 042
     Dates: start: 20101004, end: 20101009
  2. TREANDA [Suspect]
     Route: 042

REACTIONS (9)
  - ELECTROCARDIOGRAM ABNORMAL [None]
  - DEATH [None]
  - RENAL FAILURE CHRONIC [None]
  - ABNORMAL BEHAVIOUR [None]
  - AGGRESSION [None]
  - MENTAL STATUS CHANGES [None]
  - ANAEMIA [None]
  - TOOTH INFECTION [None]
  - DRUG INEFFECTIVE [None]
